FAERS Safety Report 6244537-1 (Version None)
Quarter: 2009Q2

REPORT INFORMATION
  Report Type: 
  Country: None (occurrence: None)
  Receive Date: 20090619
  Receipt Date: 20090511
  Transmission Date: 20091009
  Serious: No
  Sender: FDA-Public Use
  Company Number: ALL1-2009-01329

PATIENT
  Age: 7 Year
  Sex: Male
  Weight: 25.4 kg

DRUGS (5)
  1. VYVANSE [Suspect]
     Indication: ATTENTION DEFICIT/HYPERACTIVITY DISORDER
     Dosage: 1X/DAY:QD, ORAL ; 40 MG, 1X/DAY:QD, ORAL
     Route: 048
     Dates: start: 20090101, end: 20090422
  2. VYVANSE [Suspect]
     Indication: ATTENTION DEFICIT/HYPERACTIVITY DISORDER
     Dosage: 1X/DAY:QD, ORAL ; 40 MG, 1X/DAY:QD, ORAL
     Route: 048
     Dates: start: 20090423
  3. SINGULAIR /01362601/ (MONTELUKAST) [Concomitant]
  4. ZYRTEC [Concomitant]
  5. MIRALAX [Concomitant]

REACTIONS (6)
  - AGGRESSION [None]
  - DRUG INEFFECTIVE [None]
  - LIP PAIN [None]
  - NERVOUSNESS [None]
  - ONYCHOPHAGIA [None]
  - TIC [None]
